FAERS Safety Report 21780107 (Version 3)
Quarter: 2024Q3

REPORT INFORMATION
  Report Type: Spontaneous
  Country: US (occurrence: US)
  Receive Date: 20221226
  Receipt Date: 20240706
  Transmission Date: 20241016
  Serious: No
  Sender: TEVA
  Company Number: US-TEVA-2022-US-2839245

PATIENT
  Age: 51 Year
  Sex: Female
  Weight: 77.11 kg

DRUGS (5)
  1. AJOVY [Suspect]
     Active Substance: FREMANEZUMAB-VFRM
     Indication: Migraine
     Dosage: DOSAGE TEXT: 225/1.5 MG/ML
     Route: 065
     Dates: start: 2020
  2. AJOVY [Suspect]
     Active Substance: FREMANEZUMAB-VFRM
     Dosage: 225/1.5 MG/ML
     Route: 065
  3. UBRELVY [Concomitant]
     Active Substance: UBROGEPANT
     Indication: Product used for unknown indication
     Dosage: DOSAGE TEXT: 2-3 TIMES A MONTH
  4. TYLENOL [Concomitant]
     Active Substance: ACETAMINOPHEN
     Indication: Product used for unknown indication
  5. ADVIL [Concomitant]
     Active Substance: IBUPROFEN\IBUPROFEN SODIUM
     Indication: Product used for unknown indication
     Route: 065

REACTIONS (5)
  - Migraine [Unknown]
  - Therapeutic response unexpected [Unknown]
  - Intentional dose omission [Unknown]
  - Drug effect less than expected [Unknown]
  - Sensitivity to weather change [Unknown]
